FAERS Safety Report 4424152-2 (Version None)
Quarter: 2004Q3

REPORT INFORMATION
  Report Type: 
  Country: None (occurrence: None)
  Receive Date: 20040809
  Receipt Date: 20040727
  Transmission Date: 20050211
  Serious: Yes (Death, Life-Threatening, Hospitalization)
  Sender: FDA-Public Use
  Company Number: 04P-087-0256168-00

PATIENT
  Age: 83 Year
  Sex: Male

DRUGS (13)
  1. MAVIK [Suspect]
     Indication: HYPERTENSION
     Dosage: 0.5 MG, 1 IN 2 D, PER ORAL
     Route: 048
     Dates: start: 19980101, end: 20040417
  2. CANDESARTAN CILEXETIL [Suspect]
     Indication: ANGINA PECTORIS
     Dosage: 8 MG, 1 IN 1 D, PER ORAL
     Route: 048
     Dates: start: 20020426, end: 20040113
  3. CANDESARTAN CILEXETIL [Suspect]
     Indication: CARDIAC FAILURE
     Dosage: 8 MG, 1 IN 1 D, PER ORAL
     Route: 048
     Dates: start: 20020426, end: 20040113
  4. CANDESARTAN CILEXETIL [Suspect]
     Indication: HYPERTENSION
     Dosage: 8 MG, 1 IN 1 D, PER ORAL
     Route: 048
     Dates: start: 20020426, end: 20040113
  5. DICLOFENAC SODIUM [Suspect]
     Indication: ANALGESIC THERAPY
     Dosage: 50 MG, 1 IN 1 D, PER ORAL
     Route: 048
     Dates: start: 20031229, end: 20040113
  6. AMLODIPINE BESYLATE [Concomitant]
  7. ASPIRIN [Concomitant]
  8. ISOSORBIDE MONONITRATE [Concomitant]
  9. SARPOGRELATE HYDROCHLORIDE [Concomitant]
  10. CARVEDILOL [Concomitant]
  11. FAMOTIDINE [Concomitant]
  12. CALCIUM POLYSTYRENE SULFONATE [Concomitant]
  13. ALLOPURINOL [Concomitant]

REACTIONS (12)
  - ANGINA PECTORIS [None]
  - BRADYCARDIA [None]
  - CARDIAC FAILURE [None]
  - DEPRESSED LEVEL OF CONSCIOUSNESS [None]
  - DIALYSIS [None]
  - ELECTROCARDIOGRAM CHANGE [None]
  - FEMORAL NECK FRACTURE [None]
  - HYPERKALAEMIA [None]
  - MYOCARDIAL INFARCTION [None]
  - PAIN [None]
  - RENAL FAILURE CHRONIC [None]
  - SHOCK [None]
